FAERS Safety Report 6304348-5 (Version None)
Quarter: 2009Q3

REPORT INFORMATION
  Report Type: 
  Country: None (occurrence: None)
  Receive Date: 20090811
  Receipt Date: 20090729
  Transmission Date: 20100115
  Serious: Yes (Hospitalization, Other)
  Sender: FDA-Public Use
  Company Number: FR-PFIZER INC-2009247237

PATIENT
  Age: 78 Year

DRUGS (7)
  1. SOLU-MEDROL [Suspect]
     Indication: INFECTION
     Dosage: 60 MG, 1X/DAY
     Route: 042
     Dates: start: 20090620, end: 20090627
  2. PREVISCAN [Interacting]
     Indication: THROMBOSIS PROPHYLAXIS
     Dosage: DEPENDING ON INR VALUE
     Route: 048
     Dates: start: 20090621, end: 20090627
  3. ROCEPHIN [Interacting]
     Indication: INFECTION
     Dosage: 1 G, 1X/DAY
     Route: 042
     Dates: start: 20090620, end: 20090627
  4. NEXIUM [Concomitant]
     Dosage: 1 DF, 1X/DAY (EVENING)
  5. FUROSEMIDE [Concomitant]
     Dosage: 40 MG, 1X/DAY
  6. SYMBICORT [Concomitant]
     Dosage: 2 DF, 1X/DAY
  7. OXYGEN [Concomitant]
     Dosage: 3 LITERS/ MIN- 16H/24H

REACTIONS (2)
  - DRUG INTERACTION [None]
  - HAEMATOMA [None]
